FAERS Safety Report 9348771 (Version 4)
Quarter: 2013Q3

REPORT INFORMATION
  Report Type: Spontaneous
  Country: FR (occurrence: FR)
  Receive Date: 20130614
  Receipt Date: 20130807
  Transmission Date: 20140515
  Serious: Yes (Death, Hospitalization)
  Sender: FDA-Public Use
  Company Number: FR-TEVA-411459ISR

PATIENT
  Sex: Female

DRUGS (11)
  1. FUROSEMIDE TEVA 40 MG, SCORED TABLET [Suspect]
     Dosage: 40 MILLIGRAM DAILY;
     Route: 048
     Dates: start: 20130506, end: 20130520
  2. PREDNISOLONE [Concomitant]
     Indication: LUNG INFECTION
  3. PREDNISOLONE [Concomitant]
  4. CORVASAL [Concomitant]
  5. SERETIDE [Concomitant]
  6. SYMBICORT [Concomitant]
  7. PLAVIX [Concomitant]
  8. ATROVENT [Concomitant]
  9. RAMIPRIL [Concomitant]
  10. CRESTOR [Concomitant]
  11. OMEPRAZOLE TEVA [Concomitant]

REACTIONS (6)
  - Sudden death [Fatal]
  - Drug ineffective [Fatal]
  - Product formulation issue [Fatal]
  - Chest pain [Unknown]
  - Hyperhidrosis [Unknown]
  - Fear of death [Unknown]
